FAERS Safety Report 8690615 (Version 4)
Quarter: 2012Q4

REPORT INFORMATION
  Report Type: 
  Country: US (occurrence: US)
  Receive Date: 20120727
  Receipt Date: 20121211
  Transmission Date: 20130627
  Serious: Yes (Other)
  Sender: FDA-Public Use
  Company Number: US-ASTRAZENECA-2012SE27087

PATIENT
  Age: 88 Year
  Sex: Male
  Weight: 64.4 kg

DRUGS (8)
  1. SEROQUEL [Suspect]
     Indication: DEMENTIA
     Dosage: DURING DAYTIME
     Route: 048
  2. SEROQUEL [Suspect]
     Indication: AFFECTIVE DISORDER
     Dosage: DURING DAYTIME
     Route: 048
  3. SEROQUEL [Suspect]
     Indication: DEMENTIA
     Route: 048
     Dates: start: 2010
  4. SEROQUEL [Suspect]
     Indication: AFFECTIVE DISORDER
     Route: 048
     Dates: start: 2010
  5. SEROQUEL [Suspect]
     Indication: DEMENTIA
     Route: 048
  6. SEROQUEL [Suspect]
     Indication: AFFECTIVE DISORDER
     Route: 048
  7. EXELON PATCH [Concomitant]
     Indication: MEMORY IMPAIRMENT
  8. NAMENDA [Concomitant]
     Indication: MEMORY IMPAIRMENT

REACTIONS (9)
  - Prostate cancer [Unknown]
  - Pulmonary hypertension [Unknown]
  - Frontotemporal dementia [Unknown]
  - Agitation [Unknown]
  - Irritability [Unknown]
  - Somnolence [Unknown]
  - Hypersomnia [Unknown]
  - Drug dose omission [Unknown]
  - Off label use [Unknown]
